FAERS Safety Report 10676919 (Version 5)
Quarter: 2015Q1

REPORT INFORMATION
  Report Type: Report from Study
  Country: JP (occurrence: JP)
  Receive Date: 20141226
  Receipt Date: 20150224
  Transmission Date: 20150720
  Serious: Yes (Other)
  Sender: FDA-Public Use
  Company Number: JP-GLAXOSMITHKLINE-A201301184

PATIENT
  Age: 61 Year
  Sex: Female
  Weight: 45 kg

DRUGS (11)
  1. TYKERB [Suspect]
     Active Substance: LAPATINIB DITOSYLATE
     Dosage: 1250 MG, UNK
     Route: 048
     Dates: start: 20121022, end: 20121226
  2. TYKERB [Suspect]
     Active Substance: LAPATINIB DITOSYLATE
     Dosage: 1250 MG, UNK
     Route: 048
     Dates: start: 20130218, end: 20130421
  3. ZOMETA [Concomitant]
     Active Substance: ZOLEDRONIC ACID
     Indication: BREAST CANCER
     Dosage: 4 MG, UNK
     Route: 041
     Dates: start: 20070718
  4. XELODA [Suspect]
     Active Substance: CAPECITABINE
     Route: 048
     Dates: start: 20130218, end: 20130421
  5. PRIMPERAN [Concomitant]
     Active Substance: METOCLOPRAMIDE HYDROCHLORIDE
     Indication: PROPHYLAXIS OF NAUSEA AND VOMITING
     Dosage: UNK
     Dates: start: 20120618, end: 20130421
  6. TYKERB [Suspect]
     Active Substance: LAPATINIB DITOSYLATE
     Indication: BREAST CANCER
     Route: 048
     Dates: start: 20120618, end: 20120820
  7. HIRUDOID [Concomitant]
     Active Substance: GLYCOSAMINOGLYCANS
     Indication: PROPHYLAXIS
     Dosage: UNK
     Dates: start: 20120618, end: 20130421
  8. ADEROXIN [Concomitant]
     Indication: PROPHYLAXIS
     Dosage: UNK
     Dates: start: 20120618, end: 20130421
  9. AMLODIN [Concomitant]
     Active Substance: AMLODIPINE BESYLATE
     Indication: HYPERTENSION
     Route: 048
     Dates: start: 20070718
  10. XELODA [Suspect]
     Active Substance: CAPECITABINE
     Indication: BREAST CANCER
     Route: 048
     Dates: start: 20120618, end: 20120820
  11. XELODA [Suspect]
     Active Substance: CAPECITABINE
     Route: 048
     Dates: start: 20121022, end: 20121226

REACTIONS (10)
  - Dizziness [Recovering/Resolving]
  - Pigmentation disorder [Recovering/Resolving]
  - Skin fissures [Recovering/Resolving]
  - Nail disorder [Recovered/Resolved]
  - Pneumonia bacterial [Recovered/Resolved]
  - Malaise [Recovering/Resolving]
  - Skin exfoliation [Recovered/Resolved]
  - Stomatitis [Recovering/Resolving]
  - Pigmentation disorder [Recovered/Resolved]
  - Anaemia [Recovered/Resolved]

NARRATIVE: CASE EVENT DATE: 20120709
